FAERS Safety Report 5772118-2 (Version None)
Quarter: 2008Q2

REPORT INFORMATION
  Report Type: 
  Country: None (occurrence: None)
  Receive Date: 20080613
  Receipt Date: 20080602
  Transmission Date: 20081010
  Serious: Yes (Other)
  Sender: FDA-Public Use
  Company Number: US-ROCHE-553506

PATIENT
  Sex: Female

DRUGS (11)
  1. PEG-INTERFERON A-2A (RO 25-8310) [Suspect]
     Indication: HEPATITIS C
     Dosage: PRE FILLED SYRINGE
     Route: 065
     Dates: start: 20080229
  2. RIBAVIRIN [Suspect]
     Indication: HEPATITIS C
     Dosage: IN DIVIDED DOSES, AT 11AM AND 6PM PATIENT IN WEEK 14
     Route: 065
     Dates: start: 20080229
  3. BENTYL [Concomitant]
     Dosage: AS NEEDED
  4. XANAX [Concomitant]
  5. GEODON [Concomitant]
  6. PROVIGIL [Concomitant]
  7. PREMPRO [Concomitant]
  8. PREMPRO [Concomitant]
  9. METHADONE HCL [Concomitant]
  10. ZYRTEC [Concomitant]
  11. OXYCONTIN [Concomitant]

REACTIONS (2)
  - GLAUCOMA [None]
  - HYPERTENSION [None]
